FAERS Safety Report 17585886 (Version 2)
Quarter: 2020Q1

REPORT INFORMATION
  Report Type: Report from Study
  Country: JP (occurrence: JP)
  Receive Date: 20200326
  Receipt Date: 20200331
  Transmission Date: 20200409
  Serious: Yes (Hospitalization)
  Sender: FDA-Public Use
  Company Number: JP-CELGENEUS-JPN-20200308236

PATIENT
  Age: 71 Year
  Sex: Male
  Weight: 43.8 kg

DRUGS (23)
  1. DEXALTIN [Concomitant]
     Active Substance: DEXAMETHASONE
     Indication: GINGIVAL PAIN
     Dosage: 1 APPLICATION
     Route: 061
     Dates: start: 20191222
  2. LEVOFLOXACIN. [Concomitant]
     Active Substance: LEVOFLOXACIN
     Indication: PYREXIA
     Route: 065
     Dates: start: 20200309, end: 20200315
  3. ESOMEPRAZOLE MAGNESIUM. [Concomitant]
     Active Substance: ESOMEPRAZOLE MAGNESIUM
     Indication: GASTRITIS
     Dosage: 20 MILLIGRAM
     Route: 048
     Dates: start: 20191113
  4. FEBURIC [Concomitant]
     Active Substance: FEBUXOSTAT
     Indication: HYPERURICAEMIA
     Dosage: 20 MILLIGRAM
     Route: 048
     Dates: start: 200706
  5. REBAMIPIDE [Concomitant]
     Active Substance: REBAMIPIDE
     Indication: GASTRITIS
     Dosage: 300 MILLIGRAM
     Route: 048
     Dates: start: 20200102
  6. BAYASPIRIN [Concomitant]
     Active Substance: ASPIRIN
     Indication: CEREBRAL INFARCTION
     Dosage: 100 MILLIGRAM
     Route: 048
     Dates: start: 20200107
  7. CARBOPLATIN. [Suspect]
     Active Substance: CARBOPLATIN
     Dosage: AUC OF 6 MG/ML/MIN
     Route: 042
     Dates: start: 20200221, end: 20200221
  8. SENNOSIDES. [Concomitant]
     Active Substance: SENNOSIDES
     Indication: CONSTIPATION
     Route: 065
  9. CARBOPLATIN. [Suspect]
     Active Substance: CARBOPLATIN
     Indication: NON-SMALL CELL LUNG CANCER STAGE IV
     Dosage: TITRATED TO AN AREA UNDER THE CURVE (AUC) OF 6 MG/ML/MIN
     Route: 042
     Dates: start: 20191227, end: 20200120
  10. PROCHLORPERAZINE MALEATE. [Concomitant]
     Active Substance: PROCHLORPERAZINE MALEATE
     Indication: VOMITING
     Dosage: 15 MILLIGRAM
     Route: 048
     Dates: start: 20191125
  11. MIYA-BM [Concomitant]
     Active Substance: CLOSTRIDIUM BUTYRICUM SPORES STRAIN M-55
     Indication: ADVERSE EVENT
     Dosage: 3 DOSAGE FORMS
     Route: 048
     Dates: start: 20200102
  12. ABRAXANE [Suspect]
     Active Substance: PACLITAXEL
     Indication: NON-SMALL CELL LUNG CANCER STAGE IV
     Dosage: 100 MILLIGRAM/SQ. METER
     Route: 042
     Dates: start: 20191227, end: 20200203
  13. PEMBROLIZUMAB (MK-3475) [Suspect]
     Active Substance: PEMBROLIZUMAB
     Indication: NON-SMALL CELL LUNG CANCER STAGE IV
     Dosage: 200 MILLIGRAM
     Route: 042
     Dates: start: 20191227, end: 20200120
  14. FENTOS [Concomitant]
     Active Substance: FENTANYL
     Indication: CANCER PAIN
     Route: 003
     Dates: start: 20200228
  15. ABRAXANE [Suspect]
     Active Substance: PACLITAXEL
     Dosage: 100 MILLIGRAM/SQ. METER
     Route: 042
     Dates: start: 20200221, end: 20200221
  16. ANORO ELLIPTA [Concomitant]
     Active Substance: UMECLIDINIUM BROMIDE\VILANTEROL TRIFENATATE
     Indication: CHRONIC OBSTRUCTIVE PULMONARY DISEASE
     Dosage: 1 SPRAY
     Route: 061
     Dates: start: 20170117
  17. SULFAMETHOXAZOLE AND TRIMETHOPRIM [Concomitant]
     Active Substance: SULFAMETHOXAZOLE\TRIMETHOPRIM
     Indication: INFECTION PROPHYLAXIS
     Route: 065
  18. FILGRASTIM [Concomitant]
     Active Substance: FILGRASTIM
     Indication: WHITE BLOOD CELL COUNT DECREASED
     Dosage: 75 MICROGRAM
     Route: 058
     Dates: start: 20200305, end: 20200306
  19. FILGRASTIM [Concomitant]
     Active Substance: FILGRASTIM
     Indication: NEUTROPENIA
  20. LUBIPROSTONE [Concomitant]
     Active Substance: LUBIPROSTONE
     Indication: CONSTIPATION
     Route: 065
  21. PEMBROLIZUMAB (MK-3475) [Suspect]
     Active Substance: PEMBROLIZUMAB
     Dosage: 200 MILLIGRAM
     Route: 042
     Dates: start: 20200221, end: 20200221
  22. LOXOPROFEN SODIUM [Concomitant]
     Active Substance: LOXOPROFEN SODIUM
     Indication: CANCER PAIN
     Dosage: 540 MILLIGRAM
     Route: 048
     Dates: start: 20191113
  23. CALONAL [Concomitant]
     Active Substance: ACETAMINOPHEN
     Indication: ADVERSE EVENT
     Dosage: 200 MILLIGRAM
     Route: 048
     Dates: start: 20200102

REACTIONS (1)
  - Liver disorder [Not Recovered/Not Resolved]

NARRATIVE: CASE EVENT DATE: 20200319
